FAERS Safety Report 7314587-2 (Version None)
Quarter: 2011Q1

REPORT INFORMATION
  Report Type: 
  Country: None (occurrence: None)
  Receive Date: 20110225
  Receipt Date: 20101025
  Transmission Date: 20110831
  Serious: No
  Sender: FDA-Public Use
  Company Number: US-MYLANLABS-2010S1018632

PATIENT
  Age: 30 Year
  Sex: Female

DRUGS (3)
  1. AMNESTEEM [Suspect]
     Indication: ACNE CYSTIC
     Route: 048
     Dates: start: 20100616, end: 20100908
  2. AMNESTEEM [Suspect]
     Route: 048
     Dates: start: 20100909, end: 20101007
  3. ASCORBIC ACID [Concomitant]

REACTIONS (1)
  - HEADACHE [None]
